FAERS Safety Report 21684208 (Version 1)
Quarter: 2022Q4

REPORT INFORMATION
  Report Type: Spontaneous
  Country: US (occurrence: None)
  Receive Date: 20221202
  Receipt Date: 20221202
  Transmission Date: 20230113
  Serious: Yes (Death)
  Sender: FDA-Public Use
  Company Number: None

PATIENT
  Age: 56 Year
  Sex: Male

DRUGS (2)
  1. CARBOPLATIN [Suspect]
     Active Substance: CARBOPLATIN
     Indication: Head and neck cancer
     Dosage: 750MG  Q 3 WEEKS IV?
     Route: 042
     Dates: start: 20221122, end: 20221123
  2. GEMCITABINE [Suspect]
     Active Substance: GEMCITABINE
     Indication: Head and neck cancer
     Dosage: 1700MG Q 3 WEEKS IV ?
     Route: 042
     Dates: start: 20221122, end: 20221123

REACTIONS (1)
  - Disease progression [None]

NARRATIVE: CASE EVENT DATE: 20221123
